FAERS Safety Report 16927750 (Version 2)
Quarter: 2019Q4

REPORT INFORMATION
  Report Type: Spontaneous
  Country: GB (occurrence: GB)
  Receive Date: 20191016
  Receipt Date: 20191225
  Transmission Date: 20200122
  Serious: Yes (Hospitalization, Other)
  Sender: FDA-Public Use
  Company Number: NVSC2019GB003808

PATIENT

DRUGS (1)
  1. IMATINIB. [Suspect]
     Active Substance: IMATINIB MESYLATE
     Indication: ACUTE LYMPHOCYTIC LEUKAEMIA
     Dosage: UNK
     Route: 065

REACTIONS (4)
  - Pneumonia legionella [Unknown]
  - Neuropathy peripheral [Unknown]
  - Lower respiratory tract infection [Unknown]
  - Central nervous system neoplasm [Unknown]

NARRATIVE: CASE EVENT DATE: 201702
